FAERS Safety Report 14306307 (Version 18)
Quarter: 2019Q2

REPORT INFORMATION
  Report Type: Report from Study
  Country: DE (occurrence: DE)
  Receive Date: 20171219
  Receipt Date: 20190416
  Transmission Date: 20190711
  Serious: Yes (Hospitalization, Other)
  Sender: FDA-Public Use
  Company Number: PHHY2017DE127961

PATIENT
  Age: 75 Year
  Sex: Female
  Weight: 94 kg

DRUGS (19)
  1. AMIODARON [Concomitant]
     Active Substance: AMIODARONE
     Indication: ATRIAL FIBRILLATION
     Dosage: DAILY DOSE: 1 DF DOSAGE FORM EVERY DAY
     Route: 048
     Dates: start: 20071207
  2. ENTRESTO [Suspect]
     Active Substance: SACUBITRIL\VALSARTAN
     Indication: CARDIAC FAILURE CHRONIC
  3. TORASEMIDE [Concomitant]
     Active Substance: TORSEMIDE
     Indication: OEDEMA PERIPHERAL
     Dosage: 100 MG, 1-0-0
     Route: 048
     Dates: start: 20171019
  4. SPIRONOLACTONE. [Concomitant]
     Active Substance: SPIRONOLACTONE
     Indication: CARDIAC FAILURE
     Dosage: 1 DF, QD
     Dates: start: 20170410, end: 20170831
  5. ENTRESTO [Suspect]
     Active Substance: SACUBITRIL\VALSARTAN
     Indication: CARDIAC FAILURE
     Dosage: 1 DF (24/26 MG), BID
     Route: 048
     Dates: start: 20170322
  6. RAMIPRIL. [Concomitant]
     Active Substance: RAMIPRIL
     Indication: HYPERTENSION
     Dosage: 0.5 DF, BID
     Route: 048
     Dates: start: 20071207, end: 20170321
  7. METOPROLOL SUCCINATE. [Concomitant]
     Active Substance: METOPROLOL SUCCINATE
     Indication: ATRIAL FIBRILLATION
     Dosage: 1 DF (47.5 MG), BID
     Route: 048
     Dates: start: 20160712
  8. METOPROLOL. [Concomitant]
     Active Substance: METOPROLOL
     Indication: ATRIAL FIBRILLATION
     Dosage: 1 DF (47.5 MG), BID
     Route: 048
     Dates: start: 20170712
  9. ALDACTONE [Concomitant]
     Active Substance: SPIRONOLACTONE
     Indication: OEDEMA PERIPHERAL
     Dosage: 25 MG, 0-1-0
     Route: 048
     Dates: start: 20180504
  10. SPIRONOLACTON [Concomitant]
     Active Substance: SPIRONOLACTONE
     Indication: LEFT VENTRICULAR FAILURE
     Dosage: DAILY DOSE: 0.5 DF DOSAGE FORM EVERY DAY
     Route: 048
     Dates: start: 20170321, end: 20170831
  11. AMIODARONE [Concomitant]
     Active Substance: AMIODARONE
     Indication: ARRHYTHMIA
     Dosage: 1 DF, QD
     Route: 048
     Dates: start: 20071207
  12. SPIRONOLACTONE. [Concomitant]
     Active Substance: SPIRONOLACTONE
     Indication: LEFT VENTRICULAR FAILURE
     Dosage: 0.5 DF (50MG), QD, 0-0.5-0-0
     Route: 048
     Dates: start: 20170321, end: 20170831
  13. AMIODARON [Concomitant]
     Active Substance: AMIODARONE
     Indication: ARRHYTHMIA
  14. AMIODARONE [Concomitant]
     Active Substance: AMIODARONE
     Indication: ATRIAL FIBRILLATION
  15. PHENPROCOUMON [Concomitant]
     Active Substance: PHENPROCOUMON
     Indication: ATRIAL FIBRILLATION
     Dosage: 3 MG, PRN (ACCORDING TO QUICK VALUE)
     Route: 048
     Dates: start: 20110816, end: 20171108
  16. TORASEMID [Concomitant]
     Active Substance: TORSEMIDE
     Indication: FLUID RETENTION
     Dosage: 2 DF, QD AND 1 DF, QD
     Route: 048
     Dates: start: 20160712, end: 20170428
  17. QUETIAPINE. [Suspect]
     Active Substance: QUETIAPINE
     Indication: PSYCHOMOTOR HYPERACTIVITY
     Dosage: 1 DF (300MG), QD, 0-0-0-1
     Route: 048
     Dates: start: 20111128
  18. PHENPROCOUMON [Concomitant]
     Active Substance: PHENPROCOUMON
     Dosage: 3 MG, PRN (ACCORDING TO QUICK VALUE)
     Route: 048
  19. NOVALGIN (METAMIZOLE SODIUM) [Concomitant]
     Active Substance: METAMIZOLE SODIUM
     Indication: PAIN
     Dosage: 500 MG, TID  (1-1-1-0)
     Route: 048
     Dates: start: 20170922

REACTIONS (14)
  - Blood potassium increased [Unknown]
  - Angina pectoris [Recovered/Resolved]
  - Blood creatinine increased [Not Recovered/Not Resolved]
  - Skin ulcer [Recovering/Resolving]
  - Acute kidney injury [Recovering/Resolving]
  - Cardiac failure [Recovered/Resolved]
  - Cardiac failure [Unknown]
  - Device stimulation issue [Recovered/Resolved]
  - Cholelithiasis [Unknown]
  - Urinary retention [Unknown]
  - Hepatic cyst [Unknown]
  - Gastroenteritis [Recovered/Resolved]
  - Contraindicated product administered [Unknown]
  - Glomerular filtration rate decreased [Unknown]

NARRATIVE: CASE EVENT DATE: 20170409
